FAERS Safety Report 15986236 (Version 1)
Quarter: 2019Q1

REPORT INFORMATION
  Report Type: Spontaneous
  Country: KR (occurrence: KR)
  Receive Date: 20190220
  Receipt Date: 20190220
  Transmission Date: 20190418
  Serious: Yes (Hospitalization, Other)
  Sender: FDA-Public Use
  Company Number: KR-ALEXION PHARMACEUTICALS INC.-A201902141

PATIENT
  Age: 65 Year
  Sex: Male
  Weight: 64 kg

DRUGS (1)
  1. SOLIRIS [Suspect]
     Active Substance: ECULIZUMAB
     Indication: PAROXYSMAL NOCTURNAL HAEMOGLOBINURIA
     Dosage: 900 MG, Q2W
     Route: 065

REACTIONS (7)
  - Reticulocyte count increased [Unknown]
  - Blood lactate dehydrogenase increased [Unknown]
  - Procedural haemorrhage [Unknown]
  - Haemoglobin decreased [Unknown]
  - Back pain [Unknown]
  - Procedural pain [Unknown]
  - Blood bilirubin increased [Unknown]
